FAERS Safety Report 10394236 (Version 2)
Quarter: 2014Q4

REPORT INFORMATION
  Report Type: Report from Study
  Country: JP (occurrence: JP)
  Receive Date: 20140819
  Receipt Date: 20141020
  Transmission Date: 20150528
  Serious: Yes (Hospitalization)
  Sender: FDA-Public Use
  Company Number: US-ASTRAZENECA-2014SE60813

PATIENT
  Age: 1 Month
  Sex: Female
  Weight: 2.7 kg

DRUGS (27)
  1. VANCOMYCIN HYDROCHLORIDE. [Concomitant]
     Active Substance: VANCOMYCIN HYDROCHLORIDE
     Indication: HERPES VIRUS INFECTION
     Dates: start: 20140117, end: 20140228
  2. LIMETHASONE [Suspect]
     Active Substance: DEXAMETHASONE PALMITATE\GLYCERIN\LECITHIN\SOYBEAN OIL
     Indication: HISTIOCYTOSIS HAEMATOPHAGIC
     Route: 065
     Dates: start: 20131231, end: 20140108
  3. DECADRON [Suspect]
     Active Substance: DEXAMETHASONE
     Indication: HERPES VIRUS INFECTION
     Route: 065
     Dates: start: 20140128, end: 20140203
  4. DECADRON [Suspect]
     Active Substance: DEXAMETHASONE
     Indication: HERPES VIRUS INFECTION
     Route: 065
     Dates: start: 20140204, end: 20140206
  5. ACICLOVIR [Concomitant]
     Active Substance: ACYCLOVIR
     Indication: HISTIOCYTOSIS HAEMATOPHAGIC
     Dates: start: 20131211, end: 20140108
  6. ACICLOVIR [Concomitant]
     Active Substance: ACYCLOVIR
     Indication: HISTIOCYTOSIS HAEMATOPHAGIC
     Route: 048
     Dates: start: 20140109
  7. SYNAGIS [Suspect]
     Active Substance: PALIVIZUMAB
     Indication: INFECTION PROPHYLAXIS
     Route: 030
     Dates: start: 20140128, end: 20140128
  8. DECADRON [Suspect]
     Active Substance: DEXAMETHASONE
     Indication: HISTIOCYTOSIS HAEMATOPHAGIC
     Route: 065
     Dates: start: 20140204, end: 20140206
  9. HUMAN SERUM ALBUMIN [Concomitant]
     Indication: HERPES VIRUS INFECTION
     Dates: start: 20140108, end: 20140108
  10. AMPHOTERICIN B. [Concomitant]
     Active Substance: AMPHOTERICIN B
     Indication: HISTIOCYTOSIS HAEMATOPHAGIC
     Route: 048
     Dates: start: 20140111, end: 20140223
  11. AMPHOTERICIN B. [Concomitant]
     Active Substance: AMPHOTERICIN B
     Indication: HERPES VIRUS INFECTION
     Route: 048
     Dates: start: 20140111, end: 20140223
  12. DECADRON [Suspect]
     Active Substance: DEXAMETHASONE
     Indication: HISTIOCYTOSIS HAEMATOPHAGIC
     Route: 065
     Dates: start: 20140128, end: 20140203
  13. ACICLOVIR [Concomitant]
     Active Substance: ACYCLOVIR
     Indication: HERPES VIRUS INFECTION
     Route: 048
     Dates: start: 20140109
  14. VANCOMYCIN HYDROCHLORIDE. [Concomitant]
     Active Substance: VANCOMYCIN HYDROCHLORIDE
     Indication: HISTIOCYTOSIS HAEMATOPHAGIC
     Dates: start: 20140117, end: 20140228
  15. ENALAPRIL MALEATE. [Concomitant]
     Active Substance: ENALAPRIL MALEATE
     Indication: HERPES VIRUS INFECTION
     Route: 048
     Dates: start: 20131221, end: 20140209
  16. HUMAN SERUM ALBUMIN [Concomitant]
     Indication: HISTIOCYTOSIS HAEMATOPHAGIC
     Dates: start: 20140108, end: 20140108
  17. VANCOMYCIN HYDROCHLORIDE. [Concomitant]
     Active Substance: VANCOMYCIN HYDROCHLORIDE
     Indication: HERPES VIRUS INFECTION
     Route: 048
     Dates: start: 20140110, end: 20140116
  18. LIMETHASONE [Suspect]
     Active Substance: DEXAMETHASONE PALMITATE\GLYCERIN\LECITHIN\SOYBEAN OIL
     Indication: HISTIOCYTOSIS HAEMATOPHAGIC
     Route: 065
     Dates: start: 20131218, end: 20131230
  19. ACICLOVIR [Concomitant]
     Active Substance: ACYCLOVIR
     Indication: HERPES VIRUS INFECTION
     Dates: start: 20131211, end: 20140108
  20. ENALAPRIL MALEATE. [Concomitant]
     Active Substance: ENALAPRIL MALEATE
     Indication: HISTIOCYTOSIS HAEMATOPHAGIC
     Route: 048
     Dates: start: 20131221, end: 20140209
  21. DECADRON [Suspect]
     Active Substance: DEXAMETHASONE
     Indication: HISTIOCYTOSIS HAEMATOPHAGIC
     Route: 048
     Dates: start: 20140109, end: 20140127
  22. DECADRON [Suspect]
     Active Substance: DEXAMETHASONE
     Indication: HERPES VIRUS INFECTION
     Route: 048
     Dates: start: 20140109, end: 20140127
  23. POLYETHYLENE GLYCOL TREATED HUMAN NORMAL IMMUNOGLOBULIN [Concomitant]
     Indication: HERPES VIRUS INFECTION
     Dates: start: 20140204, end: 20140206
  24. LIMETHASONE [Suspect]
     Active Substance: DEXAMETHASONE PALMITATE\GLYCERIN\LECITHIN\SOYBEAN OIL
     Indication: HERPES VIRUS INFECTION
     Route: 065
     Dates: start: 20131218, end: 20131230
  25. LIMETHASONE [Suspect]
     Active Substance: DEXAMETHASONE PALMITATE\GLYCERIN\LECITHIN\SOYBEAN OIL
     Indication: HERPES VIRUS INFECTION
     Route: 065
     Dates: start: 20131231, end: 20140108
  26. VANCOMYCIN HYDROCHLORIDE. [Concomitant]
     Active Substance: VANCOMYCIN HYDROCHLORIDE
     Indication: HISTIOCYTOSIS HAEMATOPHAGIC
     Route: 048
     Dates: start: 20140110, end: 20140116
  27. POLYETHYLENE GLYCOL TREATED HUMAN NORMAL IMMUNOGLOBULIN [Concomitant]
     Indication: HISTIOCYTOSIS HAEMATOPHAGIC
     Dates: start: 20140204, end: 20140206

REACTIONS (2)
  - Pneumonia aspiration [Unknown]
  - Pneumonia [Recovering/Resolving]

NARRATIVE: CASE EVENT DATE: 20140204
